FAERS Safety Report 8449416-7 (Version None)
Quarter: 2012Q2

REPORT INFORMATION
  Report Type: 
  Country: None (occurrence: None)
  Receive Date: 20120619
  Receipt Date: 20120609
  Transmission Date: 20120825
  Serious: Yes (Hospitalization)
  Sender: FDA-Public Use
  Company Number: IT-ALLERGAN-1208144US

PATIENT
  Sex: Female

DRUGS (1)
  1. VISTABEX [Suspect]
     Indication: SKIN WRINKLING
     Dosage: 5 UNITS, SINGLE
     Route: 030
     Dates: start: 20120515, end: 20120515

REACTIONS (1)
  - MENINGITIS VIRAL [None]
